FAERS Safety Report 5816577-5 (Version None)
Quarter: 2008Q3

REPORT INFORMATION
  Report Type: 
  Country: None (occurrence: None)
  Receive Date: 20080717
  Receipt Date: 20071108
  Transmission Date: 20090109
  Serious: Yes (Death, Other)
  Sender: FDA-Public Use
  Company Number: 2007SP022670

PATIENT
  Age: 80 Year
  Sex: Male

DRUGS (3)
  1. INTEGRILIN [Suspect]
     Indication: MYOCARDIAL INFARCTION
  2. HEPARIN [Concomitant]
  3. TENECTEPLASE [Concomitant]

REACTIONS (1)
  - CEREBRAL HAEMORRHAGE [None]
